FAERS Safety Report 7470670-2 (Version None)
Quarter: 2011Q2

REPORT INFORMATION
  Report Type: 
  Country: None (occurrence: None)
  Receive Date: 20110510
  Receipt Date: 20110506
  Transmission Date: 20111010
  Serious: No
  Sender: FDA-Public Use
  Company Number: US-TEVA-280618USA

PATIENT
  Sex: Female
  Weight: 54.48 kg

DRUGS (5)
  1. OMEPRAZOLE [Concomitant]
  2. TIDANIDINE [Concomitant]
  3. COPAXONE [Suspect]
     Indication: MULTIPLE SCLEROSIS
     Dosage: 20 MILLIGRAM;
     Route: 058
     Dates: start: 20101101
  4. SEASONIQUE [Concomitant]
  5. DULOXETINE HYDROCHLORIDE [Concomitant]

REACTIONS (2)
  - ABDOMINAL PAIN [None]
  - BLOOD GLUCOSE FLUCTUATION [None]
